FAERS Safety Report 17089080 (Version 2)
Quarter: 2019Q4

REPORT INFORMATION
  Report Type: Spontaneous
  Country: TR (occurrence: TR)
  Receive Date: 20191128
  Receipt Date: 20191202
  Transmission Date: 20200122
  Serious: Yes (Other)
  Sender: FDA-Public Use
  Company Number: TR-TEVA-2019-TR-1145356

PATIENT
  Age: 5 Year
  Sex: Male

DRUGS (3)
  1. BUDECORT [Suspect]
     Active Substance: BUDESONIDE
     Dosage: UNKNOWN FORM STRENGTH
     Route: 055
     Dates: start: 20191113
  2. VENTOLIN [Concomitant]
     Active Substance: ALBUTEROL SULFATE
     Dosage: UNKNOWN FORM STRENGTH
     Dates: start: 20191113
  3. IPRASAL [Concomitant]
     Active Substance: ALBUTEROL SULFATE\IPRATROPIUM BROMIDE
     Dosage: UNKNOWN FORM STRENGTH
     Dates: start: 20191113

REACTIONS (3)
  - Personality disorder [Unknown]
  - Hallucination, visual [Unknown]
  - Nightmare [Unknown]

NARRATIVE: CASE EVENT DATE: 20191116
